FAERS Safety Report 15122225 (Version 4)
Quarter: 2018Q3

REPORT INFORMATION
  Report Type: Spontaneous
  Country: US (occurrence: US)
  Receive Date: 20180709
  Receipt Date: 20180924
  Transmission Date: 20181010
  Serious: No
  Sender: FDA-Public Use
  Company Number: US-PFIZER INC-2018275594

PATIENT
  Age: 78 Year
  Sex: Female
  Weight: 62.59 kg

DRUGS (4)
  1. PREMARIN [Suspect]
     Active Substance: ESTROGENS, CONJUGATED
     Indication: VULVOVAGINAL BURNING SENSATION
  2. PREMARIN [Suspect]
     Active Substance: ESTROGENS, CONJUGATED
     Indication: HORMONE THERAPY
     Dosage: UNK, 1X/DAY (APPLIES A DAB TO VAGINAL AREA EVERY NIGHT)
  3. ACETAMINOPHEN. [Concomitant]
     Active Substance: ACETAMINOPHEN
     Indication: PAIN
     Dosage: UNK
  4. PREMARIN [Suspect]
     Active Substance: ESTROGENS, CONJUGATED
     Indication: VULVOVAGINAL DRYNESS

REACTIONS (5)
  - Eye disorder [Unknown]
  - Wrong technique in product usage process [Unknown]
  - Vulvovaginal erythema [Unknown]
  - Breast tenderness [Recovered/Resolved]
  - Urinary tract infection [Unknown]
